FAERS Safety Report 9411927 (Version 2)
Quarter: 2013Q4

REPORT INFORMATION
  Report Type: Spontaneous
  Country: DE (occurrence: DE)
  Receive Date: 20130722
  Receipt Date: 20131023
  Transmission Date: 20140711
  Serious: Yes (Other)
  Sender: FDA-Public Use
  Company Number: PHHY2013DE077210

PATIENT
  Sex: Female
  Weight: 32 kg

DRUGS (4)
  1. TRILEPTAL [Suspect]
     Indication: PARTIAL SEIZURES
     Dosage: 30 MG/KG (960 MG/DAY)
     Route: 048
     Dates: start: 20130514
  2. TRILEPTAL [Suspect]
     Dosage: 40 MG/KG, UNK
     Route: 048
     Dates: start: 2013
  3. TRILEPTAL [Suspect]
     Dosage: 30 MG/KG, UNK
     Route: 048
     Dates: start: 2013
  4. FENISTIL [Concomitant]
     Dosage: UNK UKN, UNK
     Dates: start: 20130710, end: 20130711

REACTIONS (3)
  - Partial seizures [Unknown]
  - Herpes zoster [Recovered/Resolved]
  - Stress [Unknown]
